FAERS Safety Report 11371320 (Version 2)
Quarter: 2016Q2

REPORT INFORMATION
  Report Type: Spontaneous
  Country: US (occurrence: US)
  Receive Date: 20150812
  Receipt Date: 20160608
  Transmission Date: 20160815
  Serious: Yes (Hospitalization, Other)
  Sender: FDA-Public Use
  Company Number: US-ASTRAZENECA-2015SE76913

PATIENT
  Age: 908 Month
  Sex: Male
  Weight: 49.4 kg

DRUGS (9)
  1. PERFOROMIST [Suspect]
     Active Substance: FORMOTEROL FUMARATE DIHYDRATE
     Indication: DYSPNOEA
     Dosage: TWO TIMES A DAY
     Route: 055
  2. BUDESONIDE. [Suspect]
     Active Substance: BUDESONIDE
     Indication: DYSPNOEA
     Dosage: TWO TIMES A DAY
     Route: 055
  3. DIGOXIN. [Concomitant]
     Active Substance: DIGOXIN
     Indication: HEART RATE IRREGULAR
  4. IRON [Concomitant]
     Active Substance: IRON
     Indication: HAEMORRHAGE
     Dosage: DAILY
  5. COLACE [Concomitant]
     Active Substance: DOCUSATE SODIUM
     Indication: FAECES HARD
     Dosage: DAILY
  6. NEBULIZER [Concomitant]
     Active Substance: DEVICE
     Indication: DYSPNOEA
     Dosage: TWO TIMES A DAY
  7. TUDORZA PRESSAIR [Suspect]
     Active Substance: ACLIDINIUM BROMIDE
     Indication: CHRONIC OBSTRUCTIVE PULMONARY DISEASE
     Dosage: 400 MCG, 1 PUFF TWO TIMES A DAY, ACTAVIS
     Route: 055
     Dates: start: 2012
  8. PRAVASTATIN [Concomitant]
     Active Substance: PRAVASTATIN\PRAVASTATIN SODIUM
     Indication: BLOOD CHOLESTEROL
  9. ALPRAZOLAM. [Concomitant]
     Active Substance: ALPRAZOLAM
     Indication: PANIC ATTACK

REACTIONS (9)
  - Pneumonia [Unknown]
  - Pulmonary congestion [Unknown]
  - Gastrointestinal haemorrhage [Unknown]
  - Interstitial lung disease [Unknown]
  - Weight decreased [Unknown]
  - Device malfunction [Unknown]
  - Cardiac failure congestive [Unknown]
  - Faeces soft [Unknown]
  - Chronic obstructive pulmonary disease [Unknown]

NARRATIVE: CASE EVENT DATE: 201504
